FAERS Safety Report 13262651 (Version 1)
Quarter: 2017Q1

REPORT INFORMATION
  Report Type: Spontaneous
  Country: CA (occurrence: CA)
  Receive Date: 20170223
  Receipt Date: 20170223
  Transmission Date: 20170428
  Serious: Yes (Death)
  Sender: FDA-Public Use
  Company Number: CA-TEVA-742820ACC

PATIENT
  Age: 27 Year
  Sex: Female
  Weight: 68 kg

DRUGS (2)
  1. PAROXETINE. [Suspect]
     Active Substance: PAROXETINE
     Route: 065
  2. ZOPICLONE [Suspect]
     Active Substance: ZOPICLONE
     Route: 065

REACTIONS (1)
  - Toxicity to various agents [Fatal]
